FAERS Safety Report 20657091 (Version 1)
Quarter: 2022Q1

REPORT INFORMATION
  Report Type: Other
  Country: CA (occurrence: CA)
  Receive Date: 20220331
  Receipt Date: 20220331
  Transmission Date: 20220424
  Serious: Yes (Other)
  Sender: FDA-Public Use
  Company Number: CA-CELLTRION INC.-2022CA003613

PATIENT

DRUGS (16)
  1. RITUXIMAB [Suspect]
     Active Substance: RITUXIMAB
     Indication: Rheumatoid arthritis
     Dosage: 1000 MILLIGRAM
     Route: 042
  2. ASPIRIN [Concomitant]
     Active Substance: ASPIRIN
     Dosage: 81 MILLIGRAM
  3. BISOPROLOL [Concomitant]
     Active Substance: BISOPROLOL
  4. CALCIUM [Concomitant]
     Active Substance: CALCIUM
  5. CONJUGATED ESTROGENS [Concomitant]
     Active Substance: ESTROGENS, CONJUGATED
  6. CYANOCOBALAMIN [Concomitant]
     Active Substance: CYANOCOBALAMIN
  7. DICLOFENAC [Concomitant]
     Active Substance: DICLOFENAC
  8. HYDROMORPHONE HYDROCHLORIDE [Concomitant]
     Active Substance: HYDROMORPHONE HYDROCHLORIDE
  9. IRON [Concomitant]
     Active Substance: IRON
  10. LEFLUNOMIDE [Concomitant]
     Active Substance: LEFLUNOMIDE
  11. NIFEDIPINE [Concomitant]
     Active Substance: NIFEDIPINE
  12. PANTOPRAZOLE [Concomitant]
     Active Substance: PANTOPRAZOLE
  13. POTASSIUM CHLORIDE [Concomitant]
     Active Substance: POTASSIUM CHLORIDE
  14. PREDNISONE [Concomitant]
     Active Substance: PREDNISONE
  15. ROSUVASTATIN [Concomitant]
     Active Substance: ROSUVASTATIN
  16. VITAMIN D NOS [Concomitant]
     Active Substance: VITAMIN D NOS

REACTIONS (3)
  - Rheumatoid arthritis [Unknown]
  - Intentional product use issue [Unknown]
  - Off label use [Unknown]
